FAERS Safety Report 4784668-6 (Version None)
Quarter: 2005Q3

REPORT INFORMATION
  Report Type: 
  Country: None (occurrence: None)
  Receive Date: 20050930
  Receipt Date: 20050520
  Transmission Date: 20060218
  Serious: Yes (Hospitalization)
  Sender: FDA-Public Use
  Company Number: US-BRISTOL-MYERS SQUIBB COMPANY-12978706

PATIENT
  Age: 78 Year
  Sex: Male

DRUGS (12)
  1. CETUXIMAB [Suspect]
     Indication: LUNG CANCER METASTATIC
     Dosage: DOSE DELAYED/OMITTED ON 18-MAY-2005.
     Route: 042
     Dates: start: 20050511, end: 20050511
  2. CARBOPLATIN [Suspect]
     Indication: LUNG CANCER METASTATIC
     Dosage: DOSE DELAYED/OMITTED ON 18-MAY-2005 THEN DOSE REDUCED FOR NEXT INFUSION.
     Route: 042
     Dates: start: 20050511, end: 20050511
  3. GEMZAR [Suspect]
     Indication: LUNG CANCER METASTATIC
     Dosage: 1790 MG TO BE INFUSED BUT STOPPED AFTER 25% OF GEMCITABINE INFUSED + DOSE REDUCED FOR NEXT INFUSION.
     Route: 042
     Dates: start: 20050518, end: 20050518
  4. ASPIRIN [Concomitant]
     Dates: start: 19960101
  5. AZITHROMYCIN [Concomitant]
     Dates: start: 20050518
  6. CLONAZEPAM [Concomitant]
  7. DOXAZOSIN [Concomitant]
  8. LORAZEPAM [Concomitant]
  9. MIRAPEX [Concomitant]
  10. PREVACID [Concomitant]
  11. TOPROL-XL [Concomitant]
     Dates: start: 19960101
  12. ZOCOR [Concomitant]
     Dates: start: 19960101

REACTIONS (6)
  - ANAEMIA [None]
  - ASTHENIA [None]
  - HYPERSENSITIVITY [None]
  - NEUTROPENIA [None]
  - PNEUMONIA [None]
  - THROMBOCYTOPENIA [None]
